FAERS Safety Report 8830214 (Version 1)
Quarter: 2012Q4

REPORT INFORMATION
  Report Type: Spontaneous
  Country: US (occurrence: None)
  Receive Date: 20121005
  Receipt Date: 20121005
  Transmission Date: 20130627
  Serious: No
  Sender: FDA-Public Use
  Company Number: None

PATIENT
  Age: 75 Year
  Sex: Female

DRUGS (1)
  1. CREST PRO HEALTH CLINICAL MOUTHWASH [Suspect]
     Dates: start: 20120910

REACTIONS (4)
  - Oral pain [None]
  - Swollen tongue [None]
  - Glossitis [None]
  - Glossodynia [None]
